FAERS Safety Report 19490941 (Version 1)
Quarter: 2021Q3

REPORT INFORMATION
  Report Type: Spontaneous
  Country: DE (occurrence: DE)
  Receive Date: 20210705
  Receipt Date: 20210705
  Transmission Date: 20211014
  Serious: Yes (Other)
  Sender: FDA-Public Use
  Company Number: DE-AUROBINDO-AUR-APL-2021-027674

PATIENT
  Age: 76 Year
  Sex: Female
  Weight: 70 kg

DRUGS (12)
  1. RAMIPRIL. [Suspect]
     Active Substance: RAMIPRIL
     Indication: PRODUCT USED FOR UNKNOWN INDICATION
     Dosage: 6 DOSAGE FORM, ONCE A DAY (6 TABLET, 1 ONLY)
     Route: 048
     Dates: start: 20210530, end: 20210530
  2. LERCANIDIPINE [Suspect]
     Active Substance: LERCANIDIPINE
     Indication: PRODUCT USED FOR UNKNOWN INDICATION
     Dosage: 1 UNK, ONCE A DAY (1 ONLY (30?60 MG))
     Route: 048
     Dates: start: 20210530, end: 20210530
  3. METOPROLOL. [Suspect]
     Active Substance: METOPROLOL
     Indication: PRODUCT USED FOR UNKNOWN INDICATION
     Dosage: 12 DOSAGE FORM, ONCE A DAY (12 TABLET, 1 ONLY)
     Route: 048
     Dates: start: 20210530, end: 20210530
  4. LEVOTHYROXIN [Suspect]
     Active Substance: LEVOTHYROXINE
     Indication: PRODUCT USED FOR UNKNOWN INDICATION
     Dosage: 6 DOSAGE FORM, ONCE A DAY (6 TABLET, 1 ONLY)
     Route: 048
     Dates: start: 20210530, end: 20210530
  5. PREGABALIN. [Suspect]
     Active Substance: PREGABALIN
     Indication: PRODUCT USED FOR UNKNOWN INDICATION
     Dosage: 6 DOSAGE FORM, ONCE A DAY (6 TABLET, 1 ONLY)
     Route: 048
     Dates: start: 20210530, end: 20210530
  6. ROPINIROL [Suspect]
     Active Substance: ROPINIROLE
     Indication: PRODUCT USED FOR UNKNOWN INDICATION
     Dosage: 6 DOSAGE FORM, ONCE A DAY (6 TABLET, 1 ONLY)
     Route: 048
     Dates: start: 20210530, end: 20210530
  7. NALOXONE;OXYCODONE [Suspect]
     Active Substance: NALOXONE HYDROCHLORIDE\OXYCODONE HYDROCHLORIDE
     Indication: PRODUCT USED FOR UNKNOWN INDICATION
     Dosage: 6 DOSAGE FORM, ONCE A DAY (6 TABLET, 1 ONLY)
     Route: 048
     Dates: start: 20210530, end: 20210530
  8. CITALOPRAM [Suspect]
     Active Substance: CITALOPRAM HYDROBROMIDE
     Indication: PRODUCT USED FOR UNKNOWN INDICATION
     Dosage: 6 DOSAGE FORM, ONCE A DAY (6 TABLET, 1 ONLY)
     Route: 048
     Dates: start: 20210530, end: 20210530
  9. PRAVASTATIN. [Suspect]
     Active Substance: PRAVASTATIN
     Indication: PRODUCT USED FOR UNKNOWN INDICATION
     Dosage: 6 DOSAGE FORM, ONCE A DAY (6 TABLET, 1 ONLY)
     Route: 048
     Dates: start: 20210530, end: 20210530
  10. NALOXONE HYDROCHLORIDE;OXYCODONE HYDROCHLORIDE [Suspect]
     Active Substance: NALOXONE HYDROCHLORIDE\OXYCODONE HYDROCHLORIDE
     Indication: PRODUCT USED FOR UNKNOWN INDICATION
     Dosage: 6 DOSAGE FORM, ONCE A DAY (6 TABLET, 1 ONLY)
     Route: 048
     Dates: start: 20210530, end: 20210530
  11. ELIQUIS [Suspect]
     Active Substance: APIXABAN
     Indication: PRODUCT USED FOR UNKNOWN INDICATION
     Dosage: 12 DOSAGE FORM, ONCE A DAY (12 TABLET, 1 ONLY)
     Route: 048
     Dates: start: 20210530, end: 20210530
  12. VIGANTOL [CHOLECALCIFEROL\CHOLESTEROL] [Suspect]
     Active Substance: CHOLECALCIFEROL\CHOLESTEROL
     Indication: PRODUCT USED FOR UNKNOWN INDICATION
     Dosage: 6 DOSAGE FORM, ONCE A DAY (6 TABLET, 1 ONLY)
     Route: 048
     Dates: start: 20210530, end: 20210530

REACTIONS (3)
  - Suicide attempt [Unknown]
  - Intentional overdose [Unknown]
  - Blood pressure decreased [Unknown]

NARRATIVE: CASE EVENT DATE: 20210530
